FAERS Safety Report 4608806-0 (Version None)
Quarter: 2005Q1

REPORT INFORMATION
  Report Type: 
  Country: None (occurrence: None)
  Receive Date: 20050315
  Receipt Date: 20050310
  Transmission Date: 20050727
  Serious: Yes (Hospitalization)
  Sender: FDA-Public Use
  Company Number: PHBS2005DE03547

PATIENT
  Age: 51 Year
  Sex: Female

DRUGS (7)
  1. CLOZAPINE [Suspect]
     Indication: PARANOIA
     Dosage: 12.5 MG/D
     Route: 065
  2. CLOZAPINE [Suspect]
     Dosage: 150 MG/D
     Route: 065
  3. CLOZAPINE [Suspect]
     Dosage: 200 MG/D
     Route: 065
  4. CLOZAPINE [Suspect]
     Dosage: 100 MG, QHS
     Route: 065
  5. CLOZAPINE [Suspect]
     Dosage: 200 MG/D
     Route: 065
  6. MIRTAZAPINE [Concomitant]
     Dosage: 30 MG/D
     Route: 065
  7. MIRTAZAPINE [Concomitant]
     Dosage: 15 MG/D
     Route: 065

REACTIONS (11)
  - AKINESIA [None]
  - APHASIA [None]
  - C-REACTIVE PROTEIN INCREASED [None]
  - DRUG LEVEL INCREASED [None]
  - DRUG TOXICITY [None]
  - ESCHERICHIA INFECTION [None]
  - ESCHERICHIA URINARY TRACT INFECTION [None]
  - INCOHERENT [None]
  - PYREXIA [None]
  - SPEECH DISORDER [None]
  - URINARY TRACT INFECTION [None]
